FAERS Safety Report 8547451-1 (Version None)
Quarter: 2012Q3

REPORT INFORMATION
  Report Type: 
  Country: None (occurrence: None)
  Receive Date: 20120727
  Receipt Date: 20120416
  Transmission Date: 20120928
  Serious: No
  Sender: FDA-Public Use
  Company Number: US-ASTRAZENECA-2012SE25245

PATIENT
  Age: 45 Year
  Sex: Female
  Weight: 72.6 kg

DRUGS (6)
  1. ANTIDEPRESSANTS [Concomitant]
  2. CARBAMAZEPINE [Concomitant]
     Indication: CONVULSION PROPHYLAXIS
  3. NARCOTICS [Concomitant]
     Indication: BACK PAIN
  4. ANTICONVULSANTS [Concomitant]
  5. ANTI ANXIETY [Concomitant]
  6. SEROQUEL XR [Suspect]
     Indication: BIPOLAR DISORDER
     Route: 048
     Dates: start: 20060101, end: 20120401

REACTIONS (2)
  - WEIGHT ABNORMAL [None]
  - THERAPEUTIC RESPONSE UNEXPECTED [None]
